FAERS Safety Report 9848696 (Version 1)
Quarter: 2014Q1

REPORT INFORMATION
  Report Type: Spontaneous
  Country: US (occurrence: None)
  Receive Date: 20140127
  Receipt Date: 20140127
  Transmission Date: 20141002
  Serious: Yes (Disabling, Other)
  Sender: FDA-Public Use
  Company Number: None

PATIENT
  Age: 44 Year
  Sex: Male
  Weight: 77.11 kg

DRUGS (1)
  1. CYMBALTA [Suspect]
     Indication: ANXIETY
     Dosage: TAKEN BY MOUTH
     Dates: start: 20120301, end: 20140125

REACTIONS (4)
  - Dizziness postural [None]
  - Headache [None]
  - Asthenia [None]
  - Vomiting [None]
